FAERS Safety Report 18841590 (Version 1)
Quarter: 2021Q1

REPORT INFORMATION
  Report Type: Report from Study
  Country: BR (occurrence: BR)
  Receive Date: 20210203
  Receipt Date: 20210203
  Transmission Date: 20210419
  Serious: Yes (Other)
  Sender: FDA-Public Use
  Company Number: NVSC2021BR022671

PATIENT
  Sex: Female
  Weight: 58 kg

DRUGS (7)
  1. LETROZOLE. [Suspect]
     Active Substance: LETROZOLE
     Indication: PRODUCT USED FOR UNKNOWN INDICATION
     Dosage: UNK
     Route: 065
     Dates: start: 2015, end: 2018
  2. EXEMESTANE. [Concomitant]
     Active Substance: EXEMESTANE
     Indication: PRODUCT USED FOR UNKNOWN INDICATION
     Dosage: UNK (STOPPED AFTER 3 MONTHS)
     Route: 065
     Dates: start: 2019
  3. FULVESTRANT. [Concomitant]
     Active Substance: FULVESTRANT
     Indication: ANTIOESTROGEN THERAPY
     Dosage: UNK (EVERY 28 DAYS)
     Route: 065
     Dates: start: 201911
  4. RIBOCICLIB. [Concomitant]
     Active Substance: RIBOCICLIB
     Indication: BREAST CANCER
     Dosage: 200 MG
     Route: 065
  5. TAMOXIFEN [Suspect]
     Active Substance: TAMOXIFEN
     Indication: PRODUCT USED FOR UNKNOWN INDICATION
     Dosage: UNK
     Route: 065
     Dates: start: 2015, end: 2018
  6. ANASTROZOL [Suspect]
     Active Substance: ANASTROZOLE
     Indication: PRODUCT USED FOR UNKNOWN INDICATION
     Dosage: UNK
     Route: 065
     Dates: start: 2015, end: 2018
  7. ZOMETA [Concomitant]
     Active Substance: ZOLEDRONIC ACID
     Indication: BONE DISORDER
     Dosage: UNK (EVERY 3 MONTHS)
     Route: 065
     Dates: start: 201911

REACTIONS (22)
  - Pain [Recovered/Resolved]
  - Discomfort [Recovered/Resolved]
  - Discouragement [Unknown]
  - Haemangioma [Unknown]
  - Hernia [Unknown]
  - Drug intolerance [Recovered/Resolved]
  - Neoplasm [Unknown]
  - Movement disorder [Recovered/Resolved]
  - Bursitis [Unknown]
  - Drug ineffective [Unknown]
  - Walking disability [Unknown]
  - Loss of consciousness [Unknown]
  - Reflux gastritis [Unknown]
  - Visual impairment [Unknown]
  - Feeding disorder [Unknown]
  - Metastases to bone [Unknown]
  - Breast cancer [Unknown]
  - Tumour marker abnormal [Unknown]
  - Tumour marker increased [Unknown]
  - Hiatus hernia [Unknown]
  - Neoplasm malignant [Unknown]
  - Alopecia [Unknown]

NARRATIVE: CASE EVENT DATE: 2015
